FAERS Safety Report 24110351 (Version 1)
Quarter: 2024Q3

REPORT INFORMATION
  Report Type: Report from Study
  Country: US (occurrence: None)
  Receive Date: 20240718
  Receipt Date: 20240718
  Transmission Date: 20241017
  Serious: Yes (Other)
  Sender: ASTRAZENECA
  Company Number: 2019SF04484

PATIENT
  Sex: Male
  Weight: 49 kg

DRUGS (9)
  1. METOPROLOL SUCCINATE [Suspect]
     Active Substance: METOPROLOL SUCCINATE
     Route: 048
  2. TAGRISSO [Suspect]
     Active Substance: OSIMERTINIB
     Indication: Non-small cell lung cancer
     Route: 048
     Dates: start: 20180110
  3. LOSARTAN [Concomitant]
     Active Substance: LOSARTAN
  4. DRONABINOL [Concomitant]
     Active Substance: DRONABINOL
  5. PROTONIX [Concomitant]
     Active Substance: PANTOPRAZOLE SODIUM
  6. ASPIRIN [Concomitant]
     Active Substance: ASPIRIN
  7. VITAMIN B12 [Concomitant]
     Active Substance: CYANOCOBALAMIN
  8. VITAMINS [Concomitant]
     Active Substance: VITAMINS
  9. MUCINEX [Concomitant]
     Active Substance: GUAIFENESIN

REACTIONS (5)
  - Pleural effusion [Unknown]
  - Intra-abdominal fluid collection [Unknown]
  - Asthenia [Unknown]
  - Decreased appetite [Unknown]
  - Peripheral swelling [Unknown]
